FAERS Safety Report 23963507 (Version 1)
Quarter: 2024Q2

REPORT INFORMATION
  Report Type: Spontaneous
  Country: GB (occurrence: GB)
  Receive Date: 20240611
  Receipt Date: 20240611
  Transmission Date: 20240716
  Serious: Yes (Other)
  Sender: FDA-Public Use
  Company Number: GB-MYLANLABS-2024M1033276

PATIENT
  Age: 61 Year
  Sex: Male
  Weight: 97 kg

DRUGS (9)
  1. CLOZARIL [Suspect]
     Active Substance: CLOZAPINE
     Indication: Schizophrenia
     Dosage: UNK, BID (100 MG OM 200MG ON)
     Route: 048
     Dates: start: 20231215
  2. ASPIRIN [Concomitant]
     Active Substance: ASPIRIN
     Dosage: 75 MILLIGRAM, QD (OD)
     Route: 048
     Dates: start: 20240206
  3. ATORVASTATIN [Concomitant]
     Active Substance: ATORVASTATIN
     Dosage: 40 MILLIGRAM, QD (OD)
     Route: 048
     Dates: start: 20240206
  4. FLUOXETINE [Concomitant]
     Active Substance: FLUOXETINE HYDROCHLORIDE
     Dosage: 40 MILLIGRAM, QD (OD)
     Route: 048
     Dates: start: 20240206
  5. LANSOPRAZOLE [Concomitant]
     Active Substance: LANSOPRAZOLE
     Dosage: 30 MILLIGRAM, QD (OD)
     Route: 048
     Dates: start: 20240206
  6. PROCYCLIDINE [Concomitant]
     Active Substance: PROCYCLIDINE
     Dosage: 5 MILLIGRAM, QD (OD)
     Route: 048
     Dates: start: 20240206
  7. PROPRANOLOL [Concomitant]
     Active Substance: PROPRANOLOL HYDROCHLORIDE
     Dosage: 10 MILLIGRAM, BID (BD)
     Route: 048
     Dates: start: 20240206
  8. TAMSULOSIN [Concomitant]
     Active Substance: TAMSULOSIN
     Dosage: 400 MICROGRAM, QD (OD)
     Route: 048
     Dates: start: 20240206
  9. THIAMINE [Concomitant]
     Active Substance: THIAMINE
     Dosage: 100 MILLIGRAM, BID (BD)
     Route: 048
     Dates: start: 20240206

REACTIONS (3)
  - Mental impairment [Unknown]
  - Eosinophilia [Unknown]
  - Off label use [Unknown]

NARRATIVE: CASE EVENT DATE: 20231215
